FAERS Safety Report 15734362 (Version 1)
Quarter: 2018Q4

REPORT INFORMATION
  Report Type: Spontaneous
  Country: US (occurrence: US)
  Receive Date: 20181218
  Receipt Date: 20181218
  Transmission Date: 20190205
  Serious: No
  Sender: FDA-Public Use
  Company Number: US-PFIZER INC-2018519200

PATIENT
  Age: 73 Year
  Sex: Female

DRUGS (1)
  1. GENOTROPIN MQ [Suspect]
     Active Substance: SOMATROPIN
     Dosage: 0.2 MG, DAILY

REACTIONS (9)
  - Glycosylated haemoglobin increased [Unknown]
  - Fatigue [Unknown]
  - Thyroxine free increased [Unknown]
  - Pharyngeal disorder [Unknown]
  - Alopecia [Unknown]
  - Carbon dioxide increased [Unknown]
  - Neck pain [Unknown]
  - Blood glucose increased [Unknown]
  - Blood sodium increased [Unknown]

NARRATIVE: CASE EVENT DATE: 20180302
